FAERS Safety Report 24354854 (Version 1)
Quarter: 2024Q3

REPORT INFORMATION
  Report Type: Spontaneous
  Country: US (occurrence: US)
  Receive Date: 20240923
  Receipt Date: 20240923
  Transmission Date: 20241016
  Serious: No
  Sender: DAIICHI
  Company Number: US-DSJP-DS-2024-100947-US

PATIENT
  Sex: Male

DRUGS (1)
  1. ENHERTU [Suspect]
     Active Substance: FAM-TRASTUZUMAB DERUXTECAN-NXKI
     Indication: Breast cancer metastatic
     Dosage: 100MG
     Route: 065

REACTIONS (2)
  - Blood potassium abnormal [Unknown]
  - Blood magnesium abnormal [Unknown]

NARRATIVE: CASE EVENT DATE: 20240919
